FAERS Safety Report 23441795 (Version 1)
Quarter: 2024Q1

REPORT INFORMATION
  Report Type: Spontaneous
  Country: ES (occurrence: ES)
  Receive Date: 20240125
  Receipt Date: 20240125
  Transmission Date: 20240410
  Serious: Yes (Hospitalization, Other)
  Sender: FDA-Public Use
  Company Number: None

PATIENT
  Age: 83 Year
  Sex: Male

DRUGS (12)
  1. ABIRATERONE [Suspect]
     Active Substance: ABIRATERONE
     Indication: Hormone-refractory prostate cancer
     Dosage: 2 COMP C/24H
     Route: 048
     Dates: start: 20231024, end: 20231215
  2. BISOPROLOL CINFA 1,25 MG COMPRIMIDOS EFG [Concomitant]
  3. ESPIRONOLACTONA ACCORD 25 MG COMPRIMIDOS RECUBIERTOS CON PELICULA EFG, [Concomitant]
  4. PREDNISONA CINFA 10 mg COMPRIMIDOS [Concomitant]
  5. ENTRESTO 24 MG/26 MG COMPRIMIDOS RECUBIERTOS CON PELICULA [Concomitant]
  6. ATROVENT 20 microgramos SOLUCION PARA INHALACION EN ENVASE A PRESION [Concomitant]
  7. DECAPEPTYL SEMESTRAL 22,5 MG POLVO Y DISOLVENTE PARA SUSPENSION [Concomitant]
  8. HIBOR 10.000 UI ANTI-XA/0,4 ml SOLUCION INYECTABLE EN [Concomitant]
  9. JARDIANCE [Concomitant]
     Active Substance: EMPAGLIFLOZIN
  10. ACETAMINOPHEN\TRAMADOL HYDROCHLORIDE [Concomitant]
     Active Substance: ACETAMINOPHEN\TRAMADOL HYDROCHLORIDE
  11. JARDIANCE [Concomitant]
     Active Substance: EMPAGLIFLOZIN
  12. METALGIAL 500 MG/ML GOTAS ORALES EN SOLUCION [Concomitant]

REACTIONS (1)
  - Cardiac failure [Recovering/Resolving]

NARRATIVE: CASE EVENT DATE: 20231210
